FAERS Safety Report 13435354 (Version 1)
Quarter: 2017Q2

REPORT INFORMATION
  Report Type: Spontaneous
  Country: CN (occurrence: CN)
  Receive Date: 20170412
  Receipt Date: 20170412
  Transmission Date: 20170830
  Serious: Yes (Other)
  Sender: FDA-Public Use
  Company Number: CN-PFIZER INC-2017155786

PATIENT
  Age: 86 Year
  Sex: Male
  Weight: 46 kg

DRUGS (1)
  1. CELECOXIB. [Suspect]
     Active Substance: CELECOXIB
     Indication: ARTHRALGIA
     Dosage: 0.2 G, 2X/DAY
     Route: 048
     Dates: start: 20170102, end: 20170107

REACTIONS (3)
  - Somnolence [Recovering/Resolving]
  - Slow response to stimuli [Recovering/Resolving]
  - Disturbance in attention [Recovering/Resolving]

NARRATIVE: CASE EVENT DATE: 20170103
